FAERS Safety Report 6636743-9 (Version None)
Quarter: 2010Q1

REPORT INFORMATION
  Report Type: 
  Country: None (occurrence: None)
  Receive Date: 20100311
  Receipt Date: 20100301
  Transmission Date: 20100710
  Serious: Yes (Other)
  Sender: FDA-Public Use
  Company Number: 524977

PATIENT
  Age: 12 Year
  Sex: Female

DRUGS (4)
  1. METHOTREXATE [Suspect]
     Indication: BONE SARCOMA
  2. CISPLATIN [Suspect]
     Indication: BONE SARCOMA
  3. CYCLOPHOSPHAMIDE [Suspect]
     Indication: BONE SARCOMA
  4. DOXORUBICIN HCL [Suspect]
     Indication: BONE SARCOMA

REACTIONS (6)
  - ACUTE MYELOID LEUKAEMIA [None]
  - CHROMOSOMAL DELETION [None]
  - DISEASE COMPLICATION [None]
  - MULTI-ORGAN FAILURE [None]
  - MYELODYSPLASTIC SYNDROME [None]
  - STEM CELL TRANSPLANT [None]
